FAERS Safety Report 5549860-1 (Version None)
Quarter: 2007Q4

REPORT INFORMATION
  Report Type: 
  Country: None (occurrence: None)
  Receive Date: 20071129
  Receipt Date: 20070618
  Transmission Date: 20080405
  Serious: Yes (Other)
  Sender: FDA-Public Use
  Company Number: PHEH2007US09031

PATIENT
  Age: 40 Year
  Sex: Female

DRUGS (1)
  1. LAMISIL [Suspect]
     Indication: ONYCHOMYCOSIS
     Dosage: 250MG QD
     Dates: start: 20070501, end: 20070601

REACTIONS (3)
  - PHARYNGEAL OEDEMA [None]
  - RASH [None]
  - URTICARIA [None]
